FAERS Safety Report 10599159 (Version 1)
Quarter: 2014Q4

REPORT INFORMATION
  Report Type: Spontaneous
  Country: US (occurrence: US)
  Receive Date: 20141121
  Receipt Date: 20141121
  Transmission Date: 20150529
  Serious: No
  Sender: FDA-Public Use
  Company Number: US-VIVUS-2014V1000556

PATIENT
  Age: 75 Year
  Sex: Male
  Weight: 108.96 kg

DRUGS (5)
  1. STENDRA [Suspect]
     Active Substance: AVANAFIL
     Indication: ERECTILE DYSFUNCTION
     Dosage: 100 MG
     Route: 048
     Dates: start: 20140928
  2. ACIPHEX [Concomitant]
     Active Substance: RABEPRAZOLE SODIUM
  3. LAMICTAL [Concomitant]
     Active Substance: LAMOTRIGINE
  4. LISINOPRIL. [Concomitant]
     Active Substance: LISINOPRIL
  5. EFFEXOR [Concomitant]
     Active Substance: VENLAFAXINE HYDROCHLORIDE

REACTIONS (2)
  - Drug ineffective [Unknown]
  - Erectile dysfunction [Unknown]

NARRATIVE: CASE EVENT DATE: 20140928
